FAERS Safety Report 7102513-0 (Version None)
Quarter: 2010Q4

REPORT INFORMATION
  Report Type: 
  Country: None (occurrence: None)
  Receive Date: 20101115
  Receipt Date: 20101104
  Transmission Date: 20110411
  Serious: Yes (Hospitalization)
  Sender: FDA-Public Use
  Company Number: JP-TEVA-236088ISR

PATIENT
  Sex: Male
  Weight: 59.2 kg

DRUGS (9)
  1. CISPLATIN [Suspect]
     Indication: GASTRIC CANCER
     Route: 042
     Dates: start: 20100413, end: 20100413
  2. CISPLATIN [Suspect]
     Dates: start: 20100510
  3. CAPECITABINE [Suspect]
     Indication: GASTRIC CANCER
     Route: 048
     Dates: start: 20100413, end: 20100426
  4. CAPECITABINE [Suspect]
     Dates: start: 20100510
  5. ANTIXIB [Suspect]
     Indication: GASTRIC CANCER
     Route: 048
     Dates: start: 20100410, end: 20100507
  6. ANTIXIB [Suspect]
     Dates: start: 20100510
  7. BISACODYL [Concomitant]
  8. LEVOTHYROXINE SODIUM [Concomitant]
     Dates: start: 20100419
  9. LANSOPRAZOLE [Concomitant]

REACTIONS (1)
  - GASTROINTESTINAL PERFORATION [None]
